FAERS Safety Report 8474891-1 (Version None)
Quarter: 2012Q2

REPORT INFORMATION
  Report Type: 
  Country: None (occurrence: None)
  Receive Date: 20120628
  Receipt Date: 20120625
  Transmission Date: 20120825
  Serious: No
  Sender: FDA-Public Use
  Company Number: US-PFIZER INC-2012153270

PATIENT
  Sex: Female
  Weight: 56.689 kg

DRUGS (5)
  1. CALCIUM CARBONATE [Suspect]
     Indication: MINERAL SUPPLEMENTATION
     Dosage: UNK, 2X/DAY
     Route: 048
     Dates: start: 20120101
  2. CALCIUM CARBONATE [Suspect]
     Indication: MINERAL SUPPLEMENTATION
     Dosage: UNK
     Dates: end: 20120101
  3. ATORVASTATIN [Concomitant]
     Indication: BLOOD CHOLESTEROL INCREASED
     Dosage: 20 MG, DAILY
  4. LEVOTHYROXINE SODIUM [Suspect]
     Indication: THYROID DISORDER
     Dosage: 100 UG, DAILY
  5. ATENOLOL [Concomitant]
     Dosage: UNK, DAILY

REACTIONS (2)
  - BLOOD CALCIUM DECREASED [None]
  - POOR QUALITY DRUG ADMINISTERED [None]
